FAERS Safety Report 4551150-0 (Version None)
Quarter: 2005Q1

REPORT INFORMATION
  Report Type: 
  Country: None (occurrence: None)
  Receive Date: 20050111
  Receipt Date: 20050111
  Transmission Date: 20050727
  Serious: Yes (Hospitalization)
  Sender: FDA-Public Use
  Company Number: None

PATIENT
  Age: 53 Year
  Sex: Male
  Weight: 99.7913 kg

DRUGS (5)
  1. IRESSA [Suspect]
     Indication: OESOPHAGEAL CARCINOMA
     Dosage: 250MG ONCE/DAILY ORALLY
     Route: 048
     Dates: start: 20041210
  2. CISPLATIN [Suspect]
     Indication: OESOPHAGEAL CARCINOMA
     Dosage: 75MG/M2
     Dates: start: 20041227
  3. FLUOROURACIL [Suspect]
     Indication: OESOPHAGEAL CARCINOMA
     Dosage: 1000MG/M2 IV
     Route: 042
     Dates: start: 20041227
  4. MULTI-VITAMIN [Concomitant]
  5. TYLENOL [Concomitant]

REACTIONS (6)
  - DEHYDRATION [None]
  - DIARRHOEA [None]
  - FREQUENT BOWEL MOVEMENTS [None]
  - HYPOKALAEMIA [None]
  - NAUSEA [None]
  - VOMITING [None]
